FAERS Safety Report 15402186 (Version 1)
Quarter: 2018Q3

REPORT INFORMATION
  Report Type: Spontaneous
  Country: US (occurrence: US)
  Receive Date: 20180914
  Receipt Date: 20180914
  Transmission Date: 20181010
  Serious: Yes (Other)
  Sender: FDA-Public Use
  Company Number: None

PATIENT
  Age: 81 Year
  Sex: Female
  Weight: 60.78 kg

DRUGS (11)
  1. HCTZ [Concomitant]
     Active Substance: HYDROCHLOROTHIAZIDE
  2. BABY ASPIRIN 81MG [Concomitant]
  3. ATENOLOL. [Concomitant]
     Active Substance: ATENOLOL
  4. PROGESTERONE. [Concomitant]
     Active Substance: PROGESTERONE
  5. VITAMIN D3 [Concomitant]
     Active Substance: CHOLECALCIFEROL
  6. PROBIOTIC [Concomitant]
     Active Substance: PROBIOTICS NOS
  7. THYROID SUPPLEMENT [Concomitant]
  8. FLUOROURACIL 5% TOPICAL SOLUTION (AKA) 5?FU [Suspect]
     Active Substance: FLUOROURACIL
     Dosage: ?          QUANTITY:1 DF DOSAGE FORM;?
     Route: 061
     Dates: start: 20180707, end: 20180813
  9. ESTRADIOL. [Concomitant]
     Active Substance: ESTRADIOL
  10. EYE VITAMIN [Concomitant]
  11. AREDS [Concomitant]
     Active Substance: MINERALS\VITAMINS

REACTIONS (10)
  - Asthenia [None]
  - Abdominal pain upper [None]
  - Diarrhoea [None]
  - Malaise [None]
  - Weight decreased [None]
  - Vomiting [None]
  - Fatigue [None]
  - Pruritus [None]
  - Pain of skin [None]
  - Rectal haemorrhage [None]

NARRATIVE: CASE EVENT DATE: 20180813
